FAERS Safety Report 23649180 (Version 3)
Quarter: 2024Q2

REPORT INFORMATION
  Report Type: Spontaneous
  Country: US (occurrence: US)
  Receive Date: 20240319
  Receipt Date: 20240416
  Transmission Date: 20240716
  Serious: Yes (Other)
  Sender: FDA-Public Use
  Company Number: US-PFIZER INC-PV202400035858

PATIENT

DRUGS (1)
  1. PREMARIN [Suspect]
     Active Substance: ESTROGENS, CONJUGATED
     Indication: Biopsy
     Dosage: (2 WEEKS EVERY NIGHT)
     Route: 067

REACTIONS (3)
  - Neoplasm malignant [Unknown]
  - Uterine cervix atrophy [Unknown]
  - Off label use [Unknown]
